FAERS Safety Report 21915955 (Version 3)
Quarter: 2023Q1

REPORT INFORMATION
  Report Type: Spontaneous
  Country: US (occurrence: US)
  Receive Date: 20230126
  Receipt Date: 20230322
  Transmission Date: 20230418
  Serious: Yes (Other)
  Sender: FDA-Public Use
  Company Number: US-BAYER-2023A009096

PATIENT
  Age: 13 Year
  Sex: Male

DRUGS (2)
  1. AFRIN ORIGINAL NASAL [Suspect]
     Active Substance: OXYMETAZOLINE HYDROCHLORIDE
     Indication: Product use in unapproved indication
     Dosage: 2 TO 3 SPRAYS IN EACH NOSTRIL
     Route: 055
     Dates: start: 202301, end: 20230108
  2. AFRIN ORIGINAL NASAL [Suspect]
     Active Substance: OXYMETAZOLINE HYDROCHLORIDE
     Indication: Sinus operation

REACTIONS (4)
  - Brain injury [None]
  - Brain operation [Recovering/Resolving]
  - Eye swelling [Recovering/Resolving]
  - Drug hypersensitivity [None]

NARRATIVE: CASE EVENT DATE: 20230101
